FAERS Safety Report 10982192 (Version 3)
Quarter: 2015Q2

REPORT INFORMATION
  Report Type: Spontaneous
  Country: US (occurrence: US)
  Receive Date: 20150403
  Receipt Date: 20150408
  Transmission Date: 20150821
  Serious: Yes (Hospitalization)
  Sender: FDA-Public Use
  Company Number: US-DRREDDYS-USA/USA/15/0047056

PATIENT
  Age: 37 Year
  Sex: Male
  Weight: 88.4 kg

DRUGS (2)
  1. CLODERM [Concomitant]
     Active Substance: CLOCORTOLONE PIVALATE
     Indication: PRODUCT USED FOR UNKNOWN INDICATION
     Route: 065
  2. ZENATANE [Suspect]
     Active Substance: ISOTRETINOIN
     Indication: PRODUCT USED FOR UNKNOWN INDICATION
     Route: 048
     Dates: start: 20150310

REACTIONS (2)
  - Colitis [Unknown]
  - Appendicitis [Unknown]

NARRATIVE: CASE EVENT DATE: 20150325
